FAERS Safety Report 21952886 (Version 2)
Quarter: 2023Q2

REPORT INFORMATION
  Report Type: Spontaneous
  Country: US (occurrence: None)
  Receive Date: 20230204
  Receipt Date: 20230515
  Transmission Date: 20230722
  Serious: No
  Sender: FDA-Public Use
  Company Number: 2023A022986

PATIENT
  Sex: Female
  Weight: 99.8 kg

DRUGS (1)
  1. SYMLIN [Suspect]
     Active Substance: PRAMLINTIDE ACETATE
     Indication: Type 1 diabetes mellitus
     Dosage: BEFORE MEALS
     Route: 058

REACTIONS (4)
  - Weight increased [Unknown]
  - Drug dose omission by device [Unknown]
  - Device use issue [Unknown]
  - Inability to afford medication [Unknown]
